FAERS Safety Report 5628708-0 (Version None)
Quarter: 2008Q1

REPORT INFORMATION
  Report Type: 
  Country: None (occurrence: None)
  Receive Date: 20080215
  Receipt Date: 20080215
  Transmission Date: 20080703
  Serious: No
  Sender: FDA-Public Use
  Company Number: None

PATIENT
  Sex: Male

DRUGS (1)
  1. MAGNEVIST [Suspect]
     Dosage: 16 CC 1 IV
     Route: 042

REACTIONS (1)
  - NEPHROGENIC SYSTEMIC FIBROSIS [None]
